FAERS Safety Report 8402218-X (Version None)
Quarter: 2012Q2

REPORT INFORMATION
  Report Type: 
  Country: None (occurrence: None)
  Receive Date: 20120525
  Receipt Date: 20120518
  Transmission Date: 20120825
  Serious: Yes (Other)
  Sender: FDA-Public Use
  Company Number: 2007SP010923

PATIENT
  Age: 31 Year
  Sex: Female
  Weight: 49 kg

DRUGS (39)
  1. PREDNISOLONE [Concomitant]
  2. BARACLUDE [Concomitant]
  3. TEMODAL [Suspect]
     Indication: ANAPLASTIC ASTROCYTOMA
     Dosage: 75;150 MG/M2, QD, PO
     Route: 048
     Dates: start: 20080116, end: 20080120
  4. TEMODAL [Suspect]
     Indication: ANAPLASTIC ASTROCYTOMA
     Dosage: 75;150 MG/M2, QD, PO
     Route: 048
     Dates: start: 20080312, end: 20080316
  5. TEMODAL [Suspect]
     Indication: ANAPLASTIC ASTROCYTOMA
     Dosage: 75;150 MG/M2, QD, PO
     Route: 048
     Dates: start: 20080903, end: 20080907
  6. TEMODAL [Suspect]
     Indication: ANAPLASTIC ASTROCYTOMA
     Dosage: 75;150 MG/M2, QD, PO
     Route: 048
     Dates: start: 20110516, end: 20110520
  7. TEMODAL [Suspect]
     Indication: ANAPLASTIC ASTROCYTOMA
     Dosage: 75;150 MG/M2, QD, PO
     Route: 048
     Dates: start: 20111109, end: 20111113
  8. TEMODAL [Suspect]
     Indication: ANAPLASTIC ASTROCYTOMA
     Dosage: 75;150 MG/M2, QD, PO
     Route: 048
     Dates: start: 20080213, end: 20080217
  9. TEMODAL [Suspect]
     Indication: ANAPLASTIC ASTROCYTOMA
     Dosage: 75;150 MG/M2, QD, PO
     Route: 048
     Dates: start: 20080507, end: 20080511
  10. TEMODAL [Suspect]
     Indication: ANAPLASTIC ASTROCYTOMA
     Dosage: 75;150 MG/M2, QD, PO
     Route: 048
     Dates: start: 20080806, end: 20080810
  11. TEMODAL [Suspect]
     Indication: ANAPLASTIC ASTROCYTOMA
     Dosage: 75;150 MG/M2, QD, PO
     Route: 048
     Dates: start: 20110420, end: 20110424
  12. TEMODAL [Suspect]
     Indication: ANAPLASTIC ASTROCYTOMA
     Dosage: 75;150 MG/M2, QD, PO
     Route: 048
     Dates: start: 20071212, end: 20071216
  13. TEMODAL [Suspect]
     Indication: ANAPLASTIC ASTROCYTOMA
     Dosage: 75;150 MG/M2, QD, PO
     Route: 048
     Dates: start: 20080409, end: 20080413
  14. TEMODAL [Suspect]
     Indication: ANAPLASTIC ASTROCYTOMA
     Dosage: 75;150 MG/M2, QD, PO
     Route: 048
     Dates: start: 20081105, end: 20081109
  15. TEMODAL [Suspect]
     Indication: ANAPLASTIC ASTROCYTOMA
     Dosage: 75;150 MG/M2, QD, PO
     Route: 048
     Dates: start: 20111019, end: 20111023
  16. TEMODAL [Suspect]
     Indication: ANAPLASTIC ASTROCYTOMA
     Dosage: 75;150 MG/M2, QD, PO
     Route: 048
     Dates: start: 20070725, end: 20070729
  17. TEMODAL [Suspect]
     Indication: ANAPLASTIC ASTROCYTOMA
     Dosage: 75;150 MG/M2, QD, PO
     Route: 048
     Dates: start: 20080702, end: 20080706
  18. TEMODAL [Suspect]
     Indication: ANAPLASTIC ASTROCYTOMA
     Dosage: 75;150 MG/M2, QD, PO
     Route: 048
     Dates: start: 20110126, end: 20110130
  19. TEMODAL [Suspect]
     Indication: ANAPLASTIC ASTROCYTOMA
     Dosage: 75;150 MG/M2, QD, PO
     Route: 048
     Dates: start: 20110727, end: 20110731
  20. TEMODAL [Suspect]
     Indication: ANAPLASTIC ASTROCYTOMA
     Dosage: 75;150 MG/M2, QD, PO
     Route: 048
     Dates: start: 20110921, end: 20110925
  21. TEMODAL [Suspect]
     Indication: ANAPLASTIC ASTROCYTOMA
     Dosage: 75;150 MG/M2, QD, PO
     Route: 048
     Dates: start: 20070209, end: 20070322
  22. TEMODAL [Suspect]
     Indication: ANAPLASTIC ASTROCYTOMA
     Dosage: 75;150 MG/M2, QD, PO
     Route: 048
     Dates: start: 20090107, end: 20090111
  23. TEMODAL [Suspect]
     Indication: ANAPLASTIC ASTROCYTOMA
     Dosage: 75;150 MG/M2, QD, PO
     Route: 048
     Dates: start: 20110620, end: 20110624
  24. TEMODAL [Suspect]
     Indication: ANAPLASTIC ASTROCYTOMA
     Dosage: 75;150 MG/M2, QD, PO
     Route: 048
     Dates: start: 20070514, end: 20070518
  25. TEMODAL [Suspect]
     Indication: ANAPLASTIC ASTROCYTOMA
     Dosage: 75;150 MG/M2, QD, PO
     Route: 048
     Dates: start: 20070627, end: 20070701
  26. TEMODAL [Suspect]
     Indication: ANAPLASTIC ASTROCYTOMA
     Dosage: 75;150 MG/M2, QD, PO
     Route: 048
     Dates: start: 20070919, end: 20070923
  27. TEMODAL [Suspect]
     Indication: ANAPLASTIC ASTROCYTOMA
     Dosage: 75;150 MG/M2, QD, PO
     Route: 048
     Dates: start: 20071017, end: 20071021
  28. TEMODAL [Suspect]
     Indication: ANAPLASTIC ASTROCYTOMA
     Dosage: 75;150 MG/M2, QD, PO
     Route: 048
     Dates: start: 20081008, end: 20081012
  29. TEMODAL [Suspect]
     Indication: ANAPLASTIC ASTROCYTOMA
     Dosage: 75;150 MG/M2, QD, PO
     Route: 048
     Dates: start: 20081203, end: 20081207
  30. TEMODAL [Suspect]
     Indication: ANAPLASTIC ASTROCYTOMA
     Dosage: 75;150 MG/M2, QD, PO
     Route: 048
     Dates: start: 20110223, end: 20110227
  31. TEMODAL [Suspect]
     Indication: ANAPLASTIC ASTROCYTOMA
     Dosage: 75;150 MG/M2, QD, PO
     Route: 048
     Dates: start: 20110822, end: 20110826
  32. TEMODAL [Suspect]
     Indication: ANAPLASTIC ASTROCYTOMA
     Dosage: 75;150 MG/M2, QD, PO
     Route: 048
     Dates: start: 20071114, end: 20071118
  33. TEMODAL [Suspect]
     Indication: ANAPLASTIC ASTROCYTOMA
     Dosage: 75;150 MG/M2, QD, PO
     Route: 048
     Dates: start: 20090204, end: 20101226
  34. TEMODAL [Suspect]
     Indication: ANAPLASTIC ASTROCYTOMA
     Dosage: 75;150 MG/M2, QD, PO
     Route: 048
     Dates: start: 20111221, end: 20111225
  35. TEMODAL [Suspect]
     Indication: ANAPLASTIC ASTROCYTOMA
     Dosage: 75;150 MG/M2, QD, PO
     Route: 048
     Dates: start: 20070822, end: 20070826
  36. TEMODAL [Suspect]
     Indication: ANAPLASTIC ASTROCYTOMA
     Dosage: 75;150 MG/M2, QD, PO
     Route: 048
     Dates: start: 20110323, end: 20110327
  37. KYTRIL [Concomitant]
  38. COTRIM [Concomitant]
  39. TAGANET [Concomitant]

REACTIONS (1)
  - PULMONARY TUBERCULOSIS [None]
